FAERS Safety Report 11227634 (Version 2)
Quarter: 2015Q3

REPORT INFORMATION
  Report Type: Spontaneous
  Country: IT (occurrence: IT)
  Receive Date: 20150630
  Receipt Date: 20150909
  Transmission Date: 20151125
  Serious: Yes (Hospitalization)
  Sender: FDA-Public Use
  Company Number: IT-SA-2015SA090806

PATIENT
  Age: 59 Year
  Sex: Female

DRUGS (9)
  1. CLEXANE [Suspect]
     Active Substance: ENOXAPARIN SODIUM
     Dosage: DOSE:1 UNIT(S)
     Route: 058
     Dates: start: 20140602, end: 20140704
  2. TORVAST [Concomitant]
     Active Substance: ATORVASTATIN
  3. NORVASC [Concomitant]
     Active Substance: AMLODIPINE BESYLATE
  4. CARDIOASPIRIN [Concomitant]
     Active Substance: ASPIRIN
  5. MESOGLYCAN [Concomitant]
     Dosage: DOSE:1 UNIT(S)
  6. EUCREAS [Concomitant]
     Active Substance: METFORMIN HYDROCHLORIDE\VILDAGLIPTIN
  7. OKI [Concomitant]
     Active Substance: KETOPROFEN LYSINE
     Dosage: ORAL GRANULES
  8. ZOPRAZIDE [Concomitant]
  9. METFORMIN HYDROCHLORIDE. [Concomitant]
     Active Substance: METFORMIN HYDROCHLORIDE
     Dosage: DOSE:1 UNIT(S)

REACTIONS (4)
  - Urticaria [Recovering/Resolving]
  - Macroglossia [Recovering/Resolving]
  - Pruritus generalised [Unknown]
  - Oedema [Recovering/Resolving]

NARRATIVE: CASE EVENT DATE: 20140704
